FAERS Safety Report 4838970-X (Version None)
Quarter: 2005Q4

REPORT INFORMATION
  Report Type: 
  Country: None (occurrence: None)
  Receive Date: 20051025
  Receipt Date: 20050809
  Transmission Date: 20060501
  Serious: Yes (Hospitalization)
  Sender: FDA-Public Use
  Company Number: B0390172A

PATIENT
  Sex: Female

DRUGS (1)
  1. LAMOTRIGINE [Suspect]
     Dosage: 50 MG/ FOUR TIMES PER DAY/ ORAL
     Route: 048
     Dates: start: 20050726, end: 20050808

REACTIONS (3)
  - COORDINATION ABNORMAL [None]
  - MEDICATION ERROR [None]
  - RESPIRATORY DEPRESSION [None]
